FAERS Safety Report 25229332 (Version 1)
Quarter: 2025Q2

REPORT INFORMATION
  Report Type: Spontaneous
  Country: US (occurrence: US)
  Receive Date: 20250423
  Receipt Date: 20250423
  Transmission Date: 20250717
  Serious: Yes (Other)
  Sender: ALEXION PHARMACEUTICALS
  Company Number: US-AstraZeneca-CH-00851317A

PATIENT

DRUGS (2)
  1. TAGRISSO [Suspect]
     Active Substance: OSIMERTINIB
     Route: 065
  2. METOPROLOL [Concomitant]
     Active Substance: METOPROLOL
     Dosage: 25 MILLIGRAM, BID

REACTIONS (5)
  - Tachycardia [Recovered/Resolved]
  - Ventricular extrasystoles [Unknown]
  - Brain neoplasm [Unknown]
  - Lung neoplasm malignant [Unknown]
  - Bone cancer [Unknown]
